FAERS Safety Report 9553127 (Version 1)
Quarter: 2013Q3

REPORT INFORMATION
  Report Type: Spontaneous
  Country: US (occurrence: None)
  Receive Date: 20130724
  Receipt Date: 20130724
  Transmission Date: 20140515
  Serious: Yes (Life-Threatening, Hospitalization)
  Sender: FDA-Public Use
  Company Number: PHEH2012US019909

PATIENT
  Age: 85 Year
  Sex: Male
  Weight: 90.7 kg

DRUGS (12)
  1. RECLAST [Suspect]
     Indication: SENILE OSTEOPOROSIS
     Dosage: 5 MG, ONCE A YEAR, INTRAVENOUS
     Route: 042
     Dates: start: 20120808
  2. PREDNISONE (PREDNISONE) [Concomitant]
  3. LASIX (FUROSEMIDE) [Concomitant]
  4. SIMVASTATIN (SIMVASTATIN) [Concomitant]
  5. DIGOXIN (DIGOXIN) [Concomitant]
  6. GLIPIZIDE (GLIPIZIDE) [Concomitant]
  7. CALCITRON [Concomitant]
  8. JANUVIA (SITAGLIPTIN PHOSPHATE) [Concomitant]
  9. FERSULFATE [Concomitant]
  10. QUANADINE [Concomitant]
  11. OMEPRAZOLE (OMEPRAZOLE) [Concomitant]
  12. VITAMIN D (ERGOCALCIFEROL) [Concomitant]

REACTIONS (1)
  - Renal failure [None]
